FAERS Safety Report 5143785-1 (Version None)
Quarter: 2006Q4

REPORT INFORMATION
  Report Type: 
  Country: None (occurrence: None)
  Receive Date: 20061101
  Receipt Date: 20061101
  Transmission Date: 20070319
  Serious: No
  Sender: FDA-Public Use
  Company Number: None

PATIENT
  Sex: Female
  Weight: 78.9259 kg

DRUGS (2)
  1. CLIMARA [Suspect]
     Indication: MENOPAUSE
     Dosage: 0.1 MG  APPLY QWKLY  PATCH
  2. CLIMARA [Suspect]
     Indication: UTERINE LEIOMYOMA
     Dosage: 0.1 MG  APPLY QWKLY  PATCH

REACTIONS (1)
  - NO ADVERSE EFFECT [None]
